FAERS Safety Report 16130007 (Version 1)
Quarter: 2019Q1

REPORT INFORMATION
  Report Type: Spontaneous
  Country: DE (occurrence: DE)
  Receive Date: 20190328
  Receipt Date: 20190328
  Transmission Date: 20190418
  Serious: Yes (Death, Life-Threatening, Hospitalization, Other)
  Sender: FDA-Public Use
  Company Number: DE-MYLANLABS-2019M1028265

PATIENT
  Age: 73 Year
  Sex: Female
  Weight: 69 kg

DRUGS (39)
  1. METFORMIN [Suspect]
     Active Substance: METFORMIN HYDROCHLORIDE
     Indication: DIABETES MELLITUS
     Dosage: 250 MILLIGRAM,UNK
     Route: 048
     Dates: start: 20010616, end: 20010714
  2. PANTOPRAZOLE [Suspect]
     Active Substance: PANTOPRAZOLE
     Dosage: 40 MILLIGRAM,QD
     Route: 048
     Dates: start: 20010616, end: 20010714
  3. PLAVIX [Suspect]
     Active Substance: CLOPIDOGREL BISULFATE
     Indication: CORONARY ARTERY DISEASE
     Dosage: 75 MILLIGRAM,UNK
     Route: 048
     Dates: start: 20010704, end: 20010714
  4. IRENAT [Suspect]
     Active Substance: SODIUM PERCHLORATE
     Indication: HYPERTHYROIDISM
     Dosage: UNK UNK, QD
     Route: 048
     Dates: start: 20010618, end: 20010714
  5. AMARYL [Suspect]
     Active Substance: GLIMEPIRIDE
     Indication: DIABETES MELLITUS
     Dosage: 3 MILLIGRAM,UNK
     Route: 048
     Dates: start: 20010616, end: 20010703
  6. CARBIMAZOLE [Suspect]
     Active Substance: CARBIMAZOLE
     Indication: HYPERTHYROIDISM
     Dosage: 30 MILLIGRAM,QD
     Route: 048
     Dates: start: 20010621, end: 20010714
  7. GLIMEPIRIDE. [Concomitant]
     Active Substance: GLIMEPIRIDE
  8. YEAST DRIED [Suspect]
     Active Substance: YEAST
     Indication: DIARRHOEA
     Dosage: 300 MILLIGRAM,UNK
     Route: 048
     Dates: start: 20010711, end: 20010714
  9. DIGOXIN. [Suspect]
     Active Substance: DIGOXIN
     Indication: CORONARY ARTERY DISEASE
     Dosage: UNK
     Route: 048
     Dates: start: 20010703, end: 20010714
  10. EUNERPAN [Suspect]
     Active Substance: MELPERONE HYDROCHLORIDE
     Indication: RESTLESSNESS
     Dosage: 105 MILLIGRAM,QD
     Route: 048
     Dates: start: 20010706, end: 20010712
  11. LASIX [Suspect]
     Active Substance: FUROSEMIDE
     Indication: HYPERTENSION
     Dosage: 120 MILLIGRAM,QD
     Route: 042
     Dates: start: 20010703, end: 20010714
  12. NORVASC [Suspect]
     Active Substance: AMLODIPINE BESYLATE
     Indication: CORONARY ARTERY DISEASE
     Dosage: 5 MILLIGRAM,UNK
     Route: 048
     Dates: start: 20010703, end: 20010714
  13. RAMIPRIL. [Suspect]
     Active Substance: RAMIPRIL
     Indication: CORONARY ARTERY DISEASE
     Dosage: 10 MILLIGRAM,UNK
     Route: 048
     Dates: start: 20010616, end: 20010714
  14. MOLSIDOMINE [Suspect]
     Active Substance: MOLSIDOMINE
     Dosage: 16 MG,QD
     Route: 048
  15. PREDNISOLONE. [Suspect]
     Active Substance: PREDNISOLONE
     Indication: DYSPNOEA
     Dosage: 50 MILLIGRAM,UNK
     Route: 042
     Dates: start: 20010703, end: 20010703
  16. CONCOR [Suspect]
     Active Substance: BISOPROLOL FUMARATE
     Indication: CORONARY ARTERY DISEASE
     Dosage: 8 MILLIGRAM,UNK
     Route: 048
     Dates: start: 20010616, end: 20010714
  17. PANTOPRAZOLE [Suspect]
     Active Substance: PANTOPRAZOLE
     Indication: PROPHYLAXIS
     Dosage: 80 MILLIGRAM,QD
     Route: 048
  18. PREDNISOLONE. [Suspect]
     Active Substance: PREDNISOLONE
     Dosage: UNK
  19. AMPHOTERICIN B. [Suspect]
     Active Substance: AMPHOTERICIN B
     Indication: ANTIFUNGAL PROPHYLAXIS
     Dosage: 200 MILLIGRAM,UNK
     Route: 048
     Dates: start: 20010703, end: 20010714
  20. LEXOTANIL [Concomitant]
     Active Substance: BROMAZEPAM
     Indication: RESTLESSNESS
     Dosage: 1.5 MG, BID
     Route: 048
     Dates: start: 20010713, end: 20010714
  21. PARACETAMOL [Suspect]
     Active Substance: ACETAMINOPHEN
     Indication: PAIN
     Dosage: 500 MILLIGRAM,UNK
     Route: 048
     Dates: start: 20010711, end: 20010711
  22. CIPROFLOXACIN HYDROCHLORIDE. [Suspect]
     Active Substance: CIPROFLOXACIN HYDROCHLORIDE
     Dosage: 1000 MILLIGRAM, QD
     Route: 048
     Dates: start: 20010620, end: 20010628
  23. CAPTOPRIL. [Suspect]
     Active Substance: CAPTOPRIL
     Indication: CORONARY ARTERY DISEASE
     Dosage: UNK
     Route: 048
     Dates: start: 20010616, end: 20010714
  24. FRAGMIN [Suspect]
     Active Substance: DALTEPARIN SODIUM
     Indication: THROMBOSIS PROPHYLAXIS
     Dosage: 2500 INTERNATIONAL UNIT,UNK
     Route: 058
     Dates: start: 20010703, end: 20010714
  25. HALOPERIDOL. [Suspect]
     Active Substance: HALOPERIDOL
     Indication: RESTLESSNESS
     Dosage: UNK
     Route: 048
     Dates: start: 20010713, end: 20010714
  26. MOLSIDOMINE [Suspect]
     Active Substance: MOLSIDOMINE
     Indication: CORONARY ARTERY DISEASE
     Dosage: 8 MILLIGRAM,QD
     Route: 048
     Dates: start: 20010703, end: 20010714
  27. BISOPROLOL FUMARATE. [Concomitant]
     Active Substance: BISOPROLOL FUMARATE
  28. DECORTIN [Suspect]
     Active Substance: PREDNISONE
     Indication: PRODUCT USED FOR UNKNOWN INDICATION
     Dosage: UNK
     Route: 065
  29. ACETYLSALICYLIC ACID [Suspect]
     Active Substance: ASPIRIN
     Indication: CORONARY ARTERY DISEASE
     Dosage: 100 MILLIGRAM,UNK
     Route: 048
     Dates: start: 20010616, end: 20010714
  30. CIPROFLOXACIN HYDROCHLORIDE. [Suspect]
     Active Substance: CIPROFLOXACIN HYDROCHLORIDE
     Indication: CHOLECYSTITIS
     Dosage: 500 MILLIGRAM,QD
     Route: 048
     Dates: start: 20010710, end: 20010711
  31. SORTIS [Suspect]
     Active Substance: ATORVASTATIN
     Indication: HYPERLIPIDAEMIA
     Dosage: 20 MILLIGRAM,UNK
     Route: 048
     Dates: start: 20010616, end: 20010703
  32. SODIUM PERCHLORATE [Concomitant]
     Active Substance: SODIUM PERCHLORATE
     Indication: PRODUCT USED FOR UNKNOWN INDICATION
     Dosage: UNK UNK, UNK
     Dates: start: 20010618, end: 20010714
  33. LANTUS [Suspect]
     Active Substance: INSULIN GLARGINE
     Indication: DIABETES MELLITUS
     Dosage: 16 INTERNATIONAL UNIT,UNK
     Route: 058
     Dates: start: 20010616, end: 20010629
  34. CLORAZEPATE DIPOTASSIUM. [Suspect]
     Active Substance: CLORAZEPATE DIPOTASSIUM
     Indication: RESTLESSNESS
     Dosage: 10 MILLIGRAM,UNK
     Route: 048
     Dates: start: 20010710, end: 20010714
  35. DIAZEPAM. [Suspect]
     Active Substance: DIAZEPAM
     Indication: RESTLESSNESS
     Dosage: 5 MILLIGRAM,UNK
     Route: 048
     Dates: start: 20010616, end: 20010703
  36. ISOSORBIDE MONONITRATE. [Suspect]
     Active Substance: ISOSORBIDE MONONITRATE
     Indication: CORONARY ARTERY DISEASE
     Dosage: 1 DOSAGE FORM, DAILY
     Route: 048
     Dates: start: 20010703, end: 20010714
  37. METOLAZONE. [Suspect]
     Active Substance: METOLAZONE
     Indication: HYPERTENSION
     Dosage: 2 MILLIGRAM,UNK
     Route: 048
     Dates: start: 20010712, end: 20010713
  38. METOCLOPRAMIDE HYDROCHLORIDE. [Suspect]
     Active Substance: METOCLOPRAMIDE HYDROCHLORIDE
     Indication: NAUSEA
     Dosage: 7 MILLIGRAM,UNK
     Route: 048
     Dates: start: 20010704, end: 20010712
  39. ROCEPHIN [Suspect]
     Active Substance: CEFTRIAXONE SODIUM
     Indication: PYREXIA
     Dosage: 2 GRAM,QD
     Route: 042
     Dates: start: 20010629, end: 20010703

REACTIONS (13)
  - Nausea [Fatal]
  - Diarrhoea [Fatal]
  - Hyperthyroidism [Fatal]
  - Multiple organ dysfunction syndrome [Fatal]
  - Dermatitis exfoliative [Unknown]
  - Erythema [Unknown]
  - Blister [Unknown]
  - Condition aggravated [Fatal]
  - Toxic epidermal necrolysis [Fatal]
  - Cholecystitis [Fatal]
  - Electrolyte imbalance [Fatal]
  - Cholelithiasis [Fatal]
  - Respiratory disorder [Unknown]

NARRATIVE: CASE EVENT DATE: 20010703
